FAERS Safety Report 12564531 (Version 5)
Quarter: 2017Q1

REPORT INFORMATION
  Report Type: Spontaneous
  Country: US (occurrence: US)
  Receive Date: 20160718
  Receipt Date: 20170222
  Transmission Date: 20170428
  Serious: No
  Sender: FDA-Public Use
  Company Number: US-ASTRAZENECA-2016SE62069

PATIENT
  Age: 741 Month
  Sex: Female
  Weight: 90.7 kg

DRUGS (2)
  1. IRESSA [Suspect]
     Active Substance: GEFITINIB
     Indication: LUNG CARCINOMA CELL TYPE UNSPECIFIED STAGE 0
     Route: 048
     Dates: start: 20160524
  2. IRESSA [Suspect]
     Active Substance: GEFITINIB
     Indication: LUNG CARCINOMA CELL TYPE UNSPECIFIED STAGE 0
     Route: 048
     Dates: start: 20160611

REACTIONS (29)
  - Cystitis [Not Recovered/Not Resolved]
  - Pain [Unknown]
  - Dry skin [Unknown]
  - Oedema peripheral [Unknown]
  - Feeling abnormal [Unknown]
  - Fatigue [Not Recovered/Not Resolved]
  - Escherichia infection [Recovering/Resolving]
  - Colitis [Unknown]
  - Ocular hyperaemia [Not Recovered/Not Resolved]
  - Diarrhoea [Not Recovered/Not Resolved]
  - Skin atrophy [Unknown]
  - Fluid retention [Unknown]
  - Hair disorder [Unknown]
  - Genital injury [Unknown]
  - Memory impairment [Not Recovered/Not Resolved]
  - Chills [Not Recovered/Not Resolved]
  - Blister [Not Recovered/Not Resolved]
  - Weight fluctuation [Unknown]
  - Klebsiella infection [Unknown]
  - Dyspareunia [Unknown]
  - Photosensitivity reaction [Unknown]
  - Dry eye [Not Recovered/Not Resolved]
  - Dyspnoea [Unknown]
  - Gastrointestinal disorder [Unknown]
  - Pain of skin [Unknown]
  - Urinary tract infection [Not Recovered/Not Resolved]
  - Rash [Not Recovered/Not Resolved]
  - Cognitive disorder [Unknown]
  - Alopecia [Not Recovered/Not Resolved]

NARRATIVE: CASE EVENT DATE: 201606
